FAERS Safety Report 5471530-9 (Version None)
Quarter: 2007Q3

REPORT INFORMATION
  Report Type: 
  Country: None (occurrence: None)
  Receive Date: 20070928
  Receipt Date: 20070215
  Transmission Date: 20080115
  Serious: No
  Sender: FDA-Public Use
  Company Number: US-BRISTOL-MYERS SQUIBB COMPANY-13617972

PATIENT
  Age: 85 Year
  Sex: Male

DRUGS (1)
  1. DEFINITY [Suspect]
     Indication: ECHOCARDIOGRAM
     Dosage: DILUTED SOLUTION OF 1.5CC DEFINITY WITH 8 CC SALINE--RECEIVED 3 CC
     Dates: start: 20061220

REACTIONS (2)
  - ALTERED STATE OF CONSCIOUSNESS [None]
  - APNOEA [None]
